FAERS Safety Report 15821625 (Version 2)
Quarter: 2019Q1

REPORT INFORMATION
  Report Type: Spontaneous
  Country: US (occurrence: US)
  Receive Date: 20190114
  Receipt Date: 20190228
  Transmission Date: 20190417
  Serious: No
  Sender: FDA-Public Use
  Company Number: US-BAYER-2019-007756

PATIENT
  Age: 40 Year
  Sex: Female
  Weight: 59 kg

DRUGS (1)
  1. ALEVE BACK AND MUSCLE PAIN [Suspect]
     Active Substance: NAPROXEN SODIUM
     Indication: PAIN
     Dosage: 1 DF, Q4HR
     Route: 048
     Dates: start: 20181231, end: 20190107

REACTIONS (3)
  - Drug effect decreased [Unknown]
  - Product physical issue [None]
  - Incorrect dosage administered [Unknown]
